FAERS Safety Report 17451957 (Version 1)
Quarter: 2020Q1

REPORT INFORMATION
  Report Type: Spontaneous
  Country: FR (occurrence: FR)
  Receive Date: 20200224
  Receipt Date: 20200224
  Transmission Date: 20200409
  Serious: Yes (Other)
  Sender: FDA-Public Use
  Company Number: FR-PFIZER INC-2020074886

PATIENT
  Age: 38 Year
  Sex: Female

DRUGS (8)
  1. XELJANZ [Suspect]
     Active Substance: TOFACITINIB CITRATE
     Indication: COLITIS
     Dosage: 20 MG, DAILY
     Route: 048
     Dates: start: 20190930
  2. TRESIBA [Concomitant]
     Active Substance: INSULIN DEGLUDEC
     Indication: DIABETES MELLITUS
     Dosage: UNK
     Route: 058
  3. PENTASA [Concomitant]
     Active Substance: MESALAMINE
     Indication: COLITIS
     Dosage: UNK
     Route: 048
  4. OZEMPIC [Concomitant]
     Active Substance: SEMAGLUTIDE
     Indication: DIABETES MELLITUS
     Dosage: UNK
     Route: 048
  5. BISOPROLOL FUMARATE. [Concomitant]
     Active Substance: BISOPROLOL FUMARATE
     Indication: HYPERTENSION
     Dosage: UNK
     Route: 048
  6. CANDESARTAN CILEXETIL. [Concomitant]
     Active Substance: CANDESARTAN CILEXETIL
     Indication: HYPERTENSION
     Dosage: UNK
     Route: 048
  7. EFFIZINC [Concomitant]
     Active Substance: ZINC GLUCONATE
     Dosage: UNK
     Route: 048
  8. ESOMEPRAZOLE. [Concomitant]
     Active Substance: ESOMEPRAZOLE MAGNESIUM
     Dosage: UNK

REACTIONS (3)
  - Off label use [Unknown]
  - Cholestasis [Not Recovered/Not Resolved]
  - Product use in unapproved indication [Unknown]

NARRATIVE: CASE EVENT DATE: 20191106
